FAERS Safety Report 9135688 (Version 1)
Quarter: 2013Q1

REPORT INFORMATION
  Report Type: Other
  Country: US (occurrence: US)
  Receive Date: 20130304
  Receipt Date: 20130304
  Transmission Date: 20140127
  Serious: No
  Sender: FDA-Public Use
  Company Number: US-ENDO PHARMACEUTICALS INC.-OXYA20110005

PATIENT
  Sex: Male
  Weight: 69.46 kg

DRUGS (5)
  1. OXYCODONE HYDROCHLORIDE AND ACETAMINOPHEN [Suspect]
     Indication: BREAKTHROUGH PAIN
     Dosage: 15/650 MG
     Route: 048
     Dates: start: 2010
  2. FENTANYL [Suspect]
     Indication: PAIN
     Dosage: 100 MCG
     Route: 062
     Dates: start: 2008, end: 20111013
  3. FENTANYL [Suspect]
     Dosage: 75 MCG
     Route: 062
     Dates: start: 2008, end: 20111013
  4. FENTANYL [Suspect]
     Dosage: 100 MCG
     Route: 062
     Dates: start: 20111013
  5. FENTANYL [Suspect]
     Dosage: 75 MCG
     Route: 062
     Dates: start: 20111013

REACTIONS (5)
  - Gastritis [Not Recovered/Not Resolved]
  - Abdominal distension [Not Recovered/Not Resolved]
  - Flatulence [Not Recovered/Not Resolved]
  - Dyspepsia [Not Recovered/Not Resolved]
  - Constipation [Not Recovered/Not Resolved]
